FAERS Safety Report 8275014-4 (Version None)
Quarter: 2012Q2

REPORT INFORMATION
  Report Type: 
  Country: None (occurrence: None)
  Receive Date: 20120411
  Receipt Date: 20120404
  Transmission Date: 20120825
  Serious: Yes (Hospitalization)
  Sender: FDA-Public Use
  Company Number: PHHO2012PL005611

PATIENT
  Sex: Female
  Weight: 87 kg

DRUGS (6)
  1. MACROPEN [Concomitant]
     Indication: MUSCLE SPASTICITY
     Dosage: 10 MG, TID
     Route: 048
     Dates: start: 20110120
  2. FTY [Suspect]
     Indication: MULTIPLE SCLEROSIS
     Dosage: 0.5 MG, QD
     Route: 048
     Dates: start: 20090630
  3. LERIVON [Concomitant]
     Indication: AFFECTIVE DISORDER
     Dosage: 30 MG, QD
     Route: 048
     Dates: start: 20100816
  4. CEREVON [Concomitant]
     Indication: AFFECTIVE DISORDER
     Dosage: UNK
     Dates: start: 20110601
  5. BISOPROLOL FUMARATE [Concomitant]
     Indication: HYPERTENSION
     Dosage: UNK
     Dates: start: 20100903
  6. HYDROXYZINUM [Concomitant]
     Indication: PRURITUS
     Dosage: UNK
     Dates: start: 20110120

REACTIONS (2)
  - ABDOMINAL PAIN UPPER [None]
  - FLATULENCE [None]
